FAERS Safety Report 22381759 (Version 5)
Quarter: 2024Q2

REPORT INFORMATION
  Report Type: Report from Study
  Country: AT (occurrence: AT)
  Receive Date: 20230530
  Receipt Date: 20240516
  Transmission Date: 20240716
  Serious: Yes (Hospitalization, Other)
  Sender: FDA-Public Use
  Company Number: AT-TAKEDA-2023TUS040591

PATIENT
  Age: 74 Year
  Sex: Male

DRUGS (4)
  1. VELAGLUCERASE ALFA [Suspect]
     Active Substance: VELAGLUCERASE ALFA
     Indication: Gaucher^s disease
     Dosage: 6000 INTERNATIONAL UNIT, Q2WEEKS
     Route: 042
  2. VELAGLUCERASE ALFA [Suspect]
     Active Substance: VELAGLUCERASE ALFA
     Dosage: 6000 INTERNATIONAL UNIT, Q2WEEKS
     Route: 050
  3. VELAGLUCERASE ALFA [Suspect]
     Active Substance: VELAGLUCERASE ALFA
     Dosage: 6000 INTERNATIONAL UNIT, Q2WEEKS
     Route: 042
  4. VELAGLUCERASE ALFA [Suspect]
     Active Substance: VELAGLUCERASE ALFA
     Dosage: 6000 INTERNATIONAL UNIT, Q2WEEKS
     Route: 042

REACTIONS (13)
  - Meniscus injury [Unknown]
  - Circulatory collapse [Recovered/Resolved]
  - Pain in extremity [Unknown]
  - Chondropathy [Unknown]
  - Effusion [Unknown]
  - Synovial cyst [Unknown]
  - Bursitis [Unknown]
  - Osteochondral fracture [Unknown]
  - Presyncope [Recovered/Resolved]
  - Feeling hot [Recovered/Resolved]
  - Walking aid user [Recovering/Resolving]
  - Arthralgia [Recovering/Resolving]
  - Dizziness [Recovered/Resolved]

NARRATIVE: CASE EVENT DATE: 20230401
